FAERS Safety Report 13498156 (Version 1)
Quarter: 2017Q2

REPORT INFORMATION
  Report Type: Spontaneous
  Country: US (occurrence: US)
  Receive Date: 20170428
  Receipt Date: 20170428
  Transmission Date: 20170830
  Serious: No
  Sender: FDA-Public Use
  Company Number: US-BRISTOL-MYERS SQUIBB COMPANY-BMS-2017-031921

PATIENT
  Sex: Female

DRUGS (1)
  1. ELIQUIS [Suspect]
     Active Substance: APIXABAN
     Indication: PULMONARY EMBOLISM
     Dosage: UNK
     Route: 048

REACTIONS (8)
  - Asthenia [Unknown]
  - Gait disturbance [Unknown]
  - Pain [Unknown]
  - Hypersensitivity [Unknown]
  - Chest pain [Unknown]
  - Headache [Unknown]
  - Dizziness [Unknown]
  - Pallor [Unknown]
